FAERS Safety Report 7917866-0 (Version None)
Quarter: 2011Q4

REPORT INFORMATION
  Report Type: 
  Country: None (occurrence: None)
  Receive Date: 20111116
  Receipt Date: 20111104
  Transmission Date: 20120403
  Serious: Yes (Hospitalization, Other)
  Sender: FDA-Public Use
  Company Number: PHEH2011US07003

PATIENT
  Sex: Male
  Weight: 81 kg

DRUGS (7)
  1. TAMSULOSIN HCL [Concomitant]
     Dosage: 0.4 G, QD
     Route: 048
  2. EXJADE [Suspect]
     Indication: MYELOFIBROSIS
     Dosage: 500 MG, TID
     Route: 048
     Dates: start: 20100120
  3. POTASSIUM CITRATE [Concomitant]
     Dosage: 10 UG, TID
     Route: 048
  4. HYDROCODONE BITARTRATE AND ACETAMINOPHEN [Concomitant]
     Dosage: 1-2 DF, PRN
     Route: 048
  5. POLYETHYLENE GLYCOL [Concomitant]
     Route: 048
  6. EXJADE [Suspect]
     Indication: IRON OVERLOAD
     Dosage: 1500 MG, DAILY
     Route: 048
  7. IBUPROFEN [Concomitant]
     Route: 048

REACTIONS (3)
  - HYDRONEPHROSIS [None]
  - ABDOMINAL PAIN [None]
  - NEPHROLITHIASIS [None]
